FAERS Safety Report 10473228 (Version 1)
Quarter: 2014Q3

REPORT INFORMATION
  Report Type: Spontaneous
  Country: US (occurrence: None)
  Receive Date: 20140923
  Receipt Date: 20140923
  Transmission Date: 20150326
  Serious: Yes (Other)
  Sender: FDA-Public Use
  Company Number: None

PATIENT
  Age: 25 Year
  Sex: Female

DRUGS (1)
  1. AVEENO POSITIVELY AGELESS RESURFACING SCRUB [Suspect]
     Active Substance: COSMETICS
     Indication: ROUTINE HEALTH MAINTENANCE
     Route: 061
     Dates: start: 20140227, end: 20140227

REACTIONS (5)
  - Hypersensitivity [None]
  - Pruritus [None]
  - Burning sensation [None]
  - Swelling face [None]
  - Rash [None]

NARRATIVE: CASE EVENT DATE: 20140228
